FAERS Safety Report 9821662 (Version 4)
Quarter: 2014Q2

REPORT INFORMATION
  Report Type: Spontaneous
  Country: US (occurrence: US)
  Receive Date: 20140116
  Receipt Date: 20140515
  Transmission Date: 20141212
  Serious: Yes (Life-Threatening, Hospitalization, Disabling, Other)
  Sender: FDA-Public Use
  Company Number: US-009507513-1401USA006796

PATIENT
  Sex: Male
  Weight: 111.57 kg

DRUGS (16)
  1. JANUMET [Suspect]
     Indication: TYPE 2 DIABETES MELLITUS
     Dosage: 50-1000MG BID
     Route: 048
     Dates: start: 20100730
  2. JANUVIA [Suspect]
     Indication: TYPE 2 DIABETES MELLITUS
     Dosage: UNK
     Route: 048
     Dates: end: 20121022
  3. NATEGLINIDE [Concomitant]
     Indication: TYPE 2 DIABETES MELLITUS
  4. METFORMIN [Concomitant]
     Indication: TYPE 2 DIABETES MELLITUS
     Dosage: UNK
  5. GLIMEPIRIDE [Concomitant]
     Indication: TYPE 2 DIABETES MELLITUS
  6. COZAAR [Concomitant]
     Indication: HYPERTENSION
     Dosage: 100 MG, QD
     Route: 048
     Dates: start: 20090318
  7. FLOMAX (MORNIFLUMATE) [Concomitant]
     Indication: BENIGN PROSTATIC HYPERPLASIA
     Dosage: 0.4 MG, BID-TID
     Dates: start: 20090318
  8. ATACAND [Concomitant]
     Indication: HYPERTENSION
     Dosage: 32-12.5 MG QD
     Route: 048
  9. CRESTOR [Concomitant]
     Dosage: 40 MG, QD
     Route: 048
     Dates: start: 20090701
  10. AMARYL [Concomitant]
     Indication: TYPE 2 DIABETES MELLITUS
     Dosage: 4 MG, BID
     Dates: start: 20100731
  11. ZETIA [Concomitant]
     Dosage: 10 MG, QD
     Route: 048
     Dates: start: 20100730
  12. METFORMIN HYDROCHLORIDE [Concomitant]
     Indication: TYPE 2 DIABETES MELLITUS
     Dosage: 500-1000 MG QD
     Route: 048
     Dates: start: 20090318
  13. PRANDIN (DEFLAZACORT) [Concomitant]
     Indication: TYPE 2 DIABETES MELLITUS
     Dosage: 2 MG, TID
     Route: 048
     Dates: start: 20090318
  14. LOTRISONE [Concomitant]
     Indication: SKIN DISORDER
     Dosage: 1-0.5% BID
     Route: 061
     Dates: start: 20100430
  15. ASPIRIN [Concomitant]
     Indication: CORONARY ARTERY DISEASE
     Dosage: 81-325 QD
     Route: 048
     Dates: start: 20080630
  16. ATENOLOL [Concomitant]
     Indication: CORONARY ARTERY DISEASE
     Dosage: 25 MG, QD
     Route: 048

REACTIONS (40)
  - Ductal adenocarcinoma of pancreas [Unknown]
  - Metastases to lymph nodes [Unknown]
  - Tumour invasion [Unknown]
  - Pancreaticoduodenectomy [Unknown]
  - Spinal laminectomy [Unknown]
  - Pancreatic disorder [Unknown]
  - Glycosylated haemoglobin increased [Unknown]
  - Bile duct stent insertion [Unknown]
  - Postoperative ileus [Recovered/Resolved]
  - Chylothorax [Recovered/Resolved]
  - Anaemia [Unknown]
  - Abnormal weight gain [Unknown]
  - Osteoarthritis [Unknown]
  - Left ventricular hypertrophy [Unknown]
  - Mitral valve incompetence [Unknown]
  - Left atrial dilatation [Unknown]
  - Tricuspid valve incompetence [Unknown]
  - Occult blood positive [Unknown]
  - Renal cyst [Unknown]
  - Spinal column stenosis [Unknown]
  - Insomnia [Unknown]
  - Tooth fracture [Unknown]
  - Thrombocytopenia [Unknown]
  - Abnormal weight gain [Unknown]
  - Bile duct obstruction [Unknown]
  - Radiotherapy [Unknown]
  - Orthopaedic procedure [Unknown]
  - Pneumobilia [Unknown]
  - Pulmonary mass [Unknown]
  - Pruritus allergic [Unknown]
  - Serositis [Unknown]
  - Pruritus [Unknown]
  - Cholecystitis chronic [Not Recovered/Not Resolved]
  - Hypoglycaemia [Unknown]
  - Diarrhoea [Recovering/Resolving]
  - Constipation [Unknown]
  - Abdominal discomfort [Recovered/Resolved]
  - Abdominal discomfort [Recovered/Resolved]
  - Nausea [Recovered/Resolved]
  - Drug ineffective [Unknown]
